FAERS Safety Report 15845616 (Version 2)
Quarter: 2019Q1

REPORT INFORMATION
  Report Type: Report from Study
  Country: BE (occurrence: BE)
  Receive Date: 20190119
  Receipt Date: 20190327
  Transmission Date: 20190417
  Serious: Yes (Death, Hospitalization, Other)
  Sender: FDA-Public Use
  Company Number: BE-AMGEN-BELNI2017163512

PATIENT
  Age: 74 Year
  Sex: Female

DRUGS (10)
  1. STEOVIT FORTE [Concomitant]
     Dosage: QD
  2. MAGNESIUM [Concomitant]
     Active Substance: MAGNESIUM
     Dosage: QD
  3. PANTOMED [Concomitant]
     Dosage: 40 MG, QD
  4. ALLOPURINOL. [Concomitant]
     Active Substance: ALLOPURINOL
     Dosage: 100 MG, QD
  5. BEFACT [Concomitant]
     Dosage: UNK UNK, BID
  6. REDOMEX [Concomitant]
     Active Substance: AMITRIPTYLINE HYDROCHLORIDE
     Dosage: 25 MG, QD
  7. SIMVASTATINE [Concomitant]
     Active Substance: SIMVASTATIN
     Dosage: 20 MG, QD
  8. DARBEPOETIN ALFA [Suspect]
     Active Substance: DARBEPOETIN ALFA
     Indication: MYELODYSPLASTIC SYNDROME
     Dosage: 500 MUG, Q3WK
     Route: 058
     Dates: start: 20161108, end: 2016
  9. PROLIA [Concomitant]
     Active Substance: DENOSUMAB
     Dosage: UNK, Q6MO
     Route: 065
  10. DUROGESIC [Concomitant]
     Active Substance: FENTANYL
     Dosage: 25 MCG, EACH 3 DAYS

REACTIONS (2)
  - Intervertebral discitis [Unknown]
  - Acute myeloid leukaemia [Fatal]

NARRATIVE: CASE EVENT DATE: 20170111
